FAERS Safety Report 20691795 (Version 1)
Quarter: 2022Q2

REPORT INFORMATION
  Report Type: Spontaneous
  Country: US (occurrence: None)
  Receive Date: 20220407
  Receipt Date: 20220407
  Transmission Date: 20220721
  Serious: No
  Sender: FDA-Public Use
  Company Number: None

PATIENT
  Sex: Female

DRUGS (1)
  1. STELARA [Suspect]
     Active Substance: USTEKINUMAB
     Indication: Colitis ulcerative
     Dosage: OTHER FREQUENCY : EVERY 8 WEEKS;?
     Route: 058
     Dates: start: 20211103

REACTIONS (6)
  - Pain [None]
  - Abdominal discomfort [None]
  - Ultrasound scan abnormal [None]
  - Gastrointestinal disorder [None]
  - Gastrointestinal disorder [None]
  - Drug ineffective [None]
